FAERS Safety Report 7067446-7 (Version None)
Quarter: 2010Q4

REPORT INFORMATION
  Report Type: 
  Country: None (occurrence: None)
  Receive Date: 20101028
  Receipt Date: 20101027
  Transmission Date: 20110411
  Serious: Yes (Hospitalization)
  Sender: FDA-Public Use
  Company Number: DE-AMGEN-KDC439994

PATIENT

DRUGS (5)
  1. NEULASTA [Suspect]
     Indication: CHEMOTHERAPY
     Dosage: 6 MG, UNK
     Route: 058
     Dates: start: 20100722
  2. MABTHERA [Concomitant]
     Dosage: 600 MG, Q3WK
     Route: 042
     Dates: start: 20100624, end: 20100830
  3. CYCLOPHOSPHAMIDE [Concomitant]
     Dosage: 1200 MG, Q3WK
     Route: 042
     Dates: start: 20100625, end: 20100831
  4. DOXORUBICIN HYDROCHLORIDE [Concomitant]
     Dosage: 80 MG, Q3WK
     Route: 042
     Dates: start: 20100625, end: 20100831
  5. VINCRISTINE SULFATE [Concomitant]
     Dosage: 1 MG, Q3WK
     Route: 042
     Dates: start: 20100625, end: 20100831

REACTIONS (1)
  - APPENDICITIS [None]
